FAERS Safety Report 11646255 (Version 2)
Quarter: 2016Q2

REPORT INFORMATION
  Report Type: Spontaneous
  Country: US (occurrence: US)
  Receive Date: 20151020
  Receipt Date: 20160429
  Transmission Date: 20160815
  Serious: No
  Sender: FDA-Public Use
  Company Number: US-ROCHE-1611449

PATIENT
  Sex: Female

DRUGS (7)
  1. ESBRIET [Suspect]
     Active Substance: PIRFENIDONE
     Dosage: 3 CAPSULES
     Route: 048
     Dates: start: 20150805
  2. GINGER ROOT [Concomitant]
     Active Substance: GINGER
  3. NOVOLOG [Concomitant]
     Active Substance: INSULIN ASPART
     Dosage: WITH EVENING MEAL
     Route: 065
  4. LEVEMIR [Concomitant]
     Active Substance: INSULIN DETEMIR
  5. ESBRIET [Suspect]
     Active Substance: PIRFENIDONE
     Indication: IDIOPATHIC PULMONARY FIBROSIS
     Dosage: TWO CAPSULES THREE TIMES A DAY
     Route: 048
  6. GLIPIZIDE. [Concomitant]
     Active Substance: GLIPIZIDE
     Dosage: 2 TABLETS BEFORE BREAKFAST
     Route: 065
  7. LOVASTATIN. [Concomitant]
     Active Substance: LOVASTATIN
     Indication: BLOOD CHOLESTEROL

REACTIONS (6)
  - Gastrooesophageal reflux disease [Not Recovered/Not Resolved]
  - Nausea [Unknown]
  - Fatigue [Not Recovered/Not Resolved]
  - Drug dose omission [Unknown]
  - Nausea [Recovered/Resolved]
  - Medication error [Unknown]
